FAERS Safety Report 9729792 (Version 2)
Quarter: 2013Q4

REPORT INFORMATION
  Report Type: Spontaneous
  Country: US (occurrence: US)
  Receive Date: 20131204
  Receipt Date: 20131204
  Transmission Date: 20140711
  Serious: No
  Sender: FDA-Public Use
  Company Number: US-GILEAD-2009-0021930

PATIENT
  Sex: Female
  Weight: 78.47 kg

DRUGS (10)
  1. LETAIRIS [Suspect]
     Indication: PULMONARY ARTERIAL HYPERTENSION
     Route: 048
     Dates: start: 20090427, end: 20090506
  2. LETAIRIS [Suspect]
     Route: 048
     Dates: start: 200903, end: 20090426
  3. METOPROLOL [Concomitant]
     Indication: BLOOD PRESSURE
  4. ATACAND [Concomitant]
     Indication: BLOOD PRESSURE
  5. PRAVASTATIN [Concomitant]
     Indication: BLOOD PRESSURE
  6. METFORMIN [Concomitant]
     Indication: DIABETES MELLITUS
  7. METOCLOPRAMIDE [Concomitant]
  8. NEXIUM [Concomitant]
     Indication: GASTROOESOPHAGEAL REFLUX DISEASE
  9. ZOLOFT [Concomitant]
  10. LORAZEPAM [Concomitant]
     Indication: ANXIETY

REACTIONS (2)
  - Hepatic enzyme increased [Unknown]
  - Swelling [Unknown]
